FAERS Safety Report 4642652-7 (Version None)
Quarter: 2005Q2

REPORT INFORMATION
  Report Type: 
  Country: None (occurrence: None)
  Receive Date: 20050422
  Receipt Date: 20050406
  Transmission Date: 20051028
  Serious: Yes (Hospitalization, Other)
  Sender: FDA-Public Use
  Company Number: PHBS2005JP04858

PATIENT
  Age: 32 Year
  Sex: Male

DRUGS (4)
  1. BASILIXIMAB [Suspect]
     Indication: RENAL AND PANCREAS TRANSPLANT
     Route: 042
     Dates: start: 20040501, end: 20040501
  2. TACROLIMUS [Concomitant]
     Dates: start: 20040501
  3. CELLCEPT [Concomitant]
     Dates: start: 20040501
  4. STEROIDS NOS [Concomitant]
     Dates: start: 20040501

REACTIONS (6)
  - CYTOMEGALOVIRUS INFECTION [None]
  - GRAFT HAEMORRHAGE [None]
  - PERITONEAL FLUID ANALYSIS ABNORMAL [None]
  - POST PROCEDURAL COMPLICATION [None]
  - PYREXIA [None]
  - STAPHYLOCOCCAL INFECTION [None]
